FAERS Safety Report 10019731 (Version 3)
Quarter: 2014Q2

REPORT INFORMATION
  Report Type: Spontaneous
  Country: US (occurrence: US)
  Receive Date: 20140318
  Receipt Date: 20140402
  Transmission Date: 20141212
  Serious: Yes (Other)
  Sender: FDA-Public Use
  Company Number: US-ACTELION-A-NJ2013-87358

PATIENT
  Age: 58 Year
  Sex: Female

DRUGS (24)
  1. TRACLEER [Suspect]
     Indication: PULMONARY HYPERTENSION
     Dosage: 62.5 MG, BID
     Route: 048
     Dates: start: 20130805
  2. LIPITOR [Suspect]
     Dosage: 20 MG, UNK
     Dates: start: 201202
  3. OXYGEN [Concomitant]
     Dosage: 4 L/MIN, QD
  4. LASIX [Concomitant]
     Dosage: UNK, QD
  5. ALLOPURINOL [Concomitant]
     Dosage: 100 MG, UNK
  6. METOLAZONE [Concomitant]
     Dosage: 5 MG, UNK
  7. EFFIENT [Concomitant]
     Dosage: 10 MG, UNK
  8. ESTRADIOL [Concomitant]
     Dosage: 0.5 MG, UNK
  9. KAPPABI [Concomitant]
     Dosage: 500 MG, BID
     Dates: start: 20130716
  10. IRON [Concomitant]
     Dosage: 325 MG, QD
  11. REMERON [Concomitant]
     Dosage: 30 MG, UNK
     Dates: start: 201302
  12. SPIRONOLACTONE [Concomitant]
     Dosage: UNK
  13. POTASSIUM [Concomitant]
     Dosage: 30 MEQ, BID
  14. GABAPENTIN [Concomitant]
     Dosage: 100 MG, UNK
     Dates: start: 201301
  15. HYDROCORTISONE [Concomitant]
     Dosage: 20 MG, UNK
  16. SYNTHROID [Concomitant]
     Dosage: 0.125 MG, QD
  17. MAGNESIUM [Concomitant]
     Dosage: 400 MG, BID
  18. OMEPRAZOLE [Concomitant]
     Dosage: 40 MG, BID
  19. COMBIVENT [Concomitant]
     Dosage: 14.7 GMS AS NEEDED, 2 PUFFS
  20. PULMICORT [Concomitant]
     Dosage: 0.5MG/2ML BID
  21. SPIRIVA [Concomitant]
     Dosage: 18 MCG, QD, 1 PUFF
  22. SEREVENT [Concomitant]
     Dosage: 50 MCG, BID 1 PUFF
  23. HUMALOG [Concomitant]
     Dosage: 140 U, QD
     Dates: start: 2006
  24. ROFLUMILAST [Concomitant]
     Dosage: 500 MCG, QD

REACTIONS (14)
  - Endotracheal intubation [Unknown]
  - Renal haemangioma [Unknown]
  - Intervertebral disc protrusion [Not Recovered/Not Resolved]
  - Back pain [Not Recovered/Not Resolved]
  - Blood potassium decreased [Unknown]
  - Urine flow decreased [Recovering/Resolving]
  - Arthralgia [Unknown]
  - Muscle spasms [Unknown]
  - Abdominal pain [Not Recovered/Not Resolved]
  - Musculoskeletal chest pain [Recovering/Resolving]
  - Oedema peripheral [Unknown]
  - Fatigue [Unknown]
  - Oedema [Unknown]
  - Weight increased [Unknown]
